FAERS Safety Report 9848605 (Version 1)
Quarter: 2013Q4

REPORT INFORMATION
  Report Type: Spontaneous
  Country: US (occurrence: None)
  Receive Date: 20131226
  Receipt Date: 20131226
  Transmission Date: 20140711
  Serious: Yes (Other)
  Sender: FDA-Public Use
  Company Number: PHEH2012US025338

PATIENT
  Sex: 0

DRUGS (1)
  1. VOLTAREN (DICLOFENAC SODIUM) TABLET [Suspect]
     Dosage: TABLET,
     Route: 048

REACTIONS (2)
  - Haematochezia [None]
  - Drug ineffective [None]
